FAERS Safety Report 7907997-3 (Version None)
Quarter: 2011Q4

REPORT INFORMATION
  Report Type: 
  Country: None (occurrence: None)
  Receive Date: 20111110
  Receipt Date: 20111101
  Transmission Date: 20120403
  Serious: Yes (Other)
  Sender: FDA-Public Use
  Company Number: US-ASTRAZENECA-2011SE59716

PATIENT
  Age: 66 Year
  Sex: Male
  Weight: 89.4 kg

DRUGS (12)
  1. EFFEXOR XR [Concomitant]
  2. CRESTOR [Suspect]
     Route: 048
  3. OXYGEN THERAPY [Concomitant]
  4. TOPROL-XL [Suspect]
     Route: 048
  5. SEROQUEL [Suspect]
     Indication: DEPRESSION
     Route: 048
  6. INHALERS [Concomitant]
  7. SYNTHROID [Concomitant]
  8. INSULIN [Concomitant]
  9. NEBULIZERS [Concomitant]
  10. ALBUTEROL [Concomitant]
  11. METFORMIN HCL [Concomitant]
  12. CLONAZEPAM [Concomitant]

REACTIONS (5)
  - MEMORY IMPAIRMENT [None]
  - GASTRIC DISORDER [None]
  - INTRACRANIAL ANEURYSM [None]
  - CONFUSIONAL STATE [None]
  - CHRONIC OBSTRUCTIVE PULMONARY DISEASE [None]
